FAERS Safety Report 4632258-8 (Version None)
Quarter: 2005Q2

REPORT INFORMATION
  Report Type: 
  Country: None (occurrence: None)
  Receive Date: 20050411
  Receipt Date: 20050303
  Transmission Date: 20051028
  Serious: Yes (Other)
  Sender: FDA-Public Use
  Company Number: JP-ROCHE-398713

PATIENT
  Age: 40 Year
  Sex: Female

DRUGS (3)
  1. TAMIFLU [Suspect]
     Indication: INFLUENZA
     Route: 048
     Dates: start: 20050223, end: 20050225
  2. TAMIFLU [Suspect]
     Route: 048
     Dates: start: 20050226, end: 20050226
  3. PELEX [Concomitant]
     Route: 048
     Dates: start: 20050223, end: 20050226

REACTIONS (3)
  - EYELID PTOSIS [None]
  - HYPOAESTHESIA [None]
  - WHITE BLOOD CELL COUNT DECREASED [None]
